FAERS Safety Report 14055179 (Version 1)
Quarter: 2017Q4

REPORT INFORMATION
  Report Type: Spontaneous
  Country: US (occurrence: US)
  Receive Date: 20171006
  Receipt Date: 20171006
  Transmission Date: 20180321
  Serious: No
  Sender: FDA-Public Use
  Company Number: US-JNJFOC-20170806068

PATIENT
  Sex: Male

DRUGS (3)
  1. MENS ROGAINE EXTRA STRENGTH [Suspect]
     Active Substance: MINOXIDIL
     Route: 061
  2. MENS ROGAINE EXTRA STRENGTH [Suspect]
     Active Substance: MINOXIDIL
     Indication: ALOPECIA
     Dosage: 6 WEEKS AGO
     Route: 061
     Dates: start: 2017, end: 2017
  3. PROPECIA [Suspect]
     Active Substance: FINASTERIDE
     Indication: PRODUCT USED FOR UNKNOWN INDICATION
     Dosage: LATE JUNE, 6 WEEKS
     Route: 065
     Dates: start: 2017, end: 2017

REACTIONS (2)
  - Rash generalised [Unknown]
  - Pruritus generalised [Unknown]

NARRATIVE: CASE EVENT DATE: 2017
